FAERS Safety Report 8651316 (Version 3)
Quarter: 2012Q4

REPORT INFORMATION
  Report Type: 
  Country: FR (occurrence: FR)
  Receive Date: 20120705
  Receipt Date: 20120827
  Transmission Date: 20130627
  Serious: Yes (Hospitalization, Other)
  Sender: FDA-Public Use
  Company Number: FR-ABBOTT-12P-056-0950500-00

PATIENT
  Age: 60 None
  Sex: Female

DRUGS (8)
  1. TARKA [Suspect]
     Indication: HYPERTENSION
     Route: 048
     Dates: end: 20120218
  2. ATRIPLA [Suspect]
     Indication: HIV INFECTION
     Dosage: 600mg/200mg/245mg
     Route: 048
     Dates: end: 20120218
  3. FLUDEX [Suspect]
     Indication: HYPERTENSION
     Route: 048
     Dates: end: 20120218
  4. MEDIATENSYL [Suspect]
     Indication: HYPERTENSION
     Route: 048
     Dates: end: 20120220
  5. ACTONEL [Suspect]
     Indication: PRODUCT USED FOR UNKNOWN INDICATION
     Route: 048
     Dates: end: 20120220
  6. PLAVIX [Suspect]
     Indication: PRODUCT USED FOR UNKNOWN INDICATION
     Route: 048
     Dates: end: 20120220
  7. INEGY [Concomitant]
     Indication: PRODUCT USED FOR UNKNOWN INDICATION
     Route: 048
  8. IMOVANE [Concomitant]
     Indication: PRODUCT USED FOR UNKNOWN INDICATION
     Route: 048

REACTIONS (8)
  - Renal pain [Unknown]
  - Renal failure acute [Unknown]
  - Hypokalaemia [Unknown]
  - Hypoalbuminaemia [Unknown]
  - Tubulointerstitial nephritis [Recovered/Resolved with Sequelae]
  - Renal tubular necrosis [Recovered/Resolved with Sequelae]
  - Renal tubular disorder [Recovered/Resolved with Sequelae]
  - Nephrosclerosis [Recovered/Resolved with Sequelae]
